FAERS Safety Report 25926369 (Version 1)
Quarter: 2025Q4

REPORT INFORMATION
  Report Type: Spontaneous
  Country: US (occurrence: US)
  Receive Date: 20251015
  Receipt Date: 20251015
  Transmission Date: 20260118
  Serious: No
  Sender: VERTEX
  Company Number: US-VERTEX PHARMACEUTICALS-2025-016765

PATIENT

DRUGS (3)
  1. JOURNAVX [Suspect]
     Active Substance: SUZETRIGINE
     Indication: Product used for unknown indication
     Dosage: 02 PILLS OF SUZETRIGINE
     Route: 048
     Dates: start: 20251006, end: 20251006
  2. JOURNAVX [Suspect]
     Active Substance: SUZETRIGINE
     Dosage: 01 PILL OF SUZETRIGINE
     Route: 048
     Dates: start: 20251007
  3. DOXYCYCLINE [Concomitant]
     Active Substance: DOXYCYCLINE
     Dosage: UNK

REACTIONS (1)
  - Diarrhoea [Unknown]

NARRATIVE: CASE EVENT DATE: 20251007
